FAERS Safety Report 8266595-5 (Version None)
Quarter: 2012Q2

REPORT INFORMATION
  Report Type: 
  Country: None (occurrence: None)
  Receive Date: 20120406
  Receipt Date: 20120322
  Transmission Date: 20120825
  Serious: Yes (Death)
  Sender: FDA-Public Use
  Company Number: TW-BAXTER-2012BH007700

PATIENT
  Age: 84 Year
  Sex: Female

DRUGS (2)
  1. EXTRANEAL [Suspect]
     Route: 033
     Dates: start: 20091001
  2. DIANEAL_2.5% PD2_SOLUTION FOR PERITONEAL DIALYSIS_BAG, PVC [Suspect]
     Route: 033
     Dates: start: 20091001

REACTIONS (1)
  - SEPSIS [None]
